FAERS Safety Report 6603159-0 (Version None)
Quarter: 2010Q1

REPORT INFORMATION
  Report Type: 
  Country: None (occurrence: None)
  Receive Date: 20100218
  Receipt Date: 20100204
  Transmission Date: 20100710
  Serious: Yes (Life-Threatening)
  Sender: FDA-Public Use
  Company Number: 1000010503

PATIENT
  Age: 27 Year
  Sex: Male

DRUGS (4)
  1. CITALOPRAM HYDROBROMIDE [Suspect]
     Indication: DEPRESSION
     Dosage: 10 MG (10 MG, 1 IN 1 D), ORAL
     Route: 048
     Dates: start: 20091106, end: 20091108
  2. TRUXAL (TABLETS) [Suspect]
     Indication: RESTLESSNESS
     Dosage: (25 MG), ORAL
     Route: 048
     Dates: start: 20091105, end: 20091108
  3. RISPERDAL [Suspect]
     Indication: PSYCHOTIC DISORDER
     Dosage: 2 MG (1 MG, 2 IN 1 D), ORAL
     Route: 048
     Dates: start: 20091107, end: 20091108
  4. ZYPREXA [Concomitant]

REACTIONS (5)
  - ALANINE AMINOTRANSFERASE INCREASED [None]
  - ANAPHYLACTIC REACTION [None]
  - ASPARTATE AMINOTRANSFERASE INCREASED [None]
  - BUNDLE BRANCH BLOCK RIGHT [None]
  - DRUG INTERACTION [None]
